FAERS Safety Report 5375886-7 (Version None)
Quarter: 2007Q2

REPORT INFORMATION
  Report Type: 
  Country: None (occurrence: None)
  Receive Date: 20070627
  Receipt Date: 20070627
  Transmission Date: 20071010
  Serious: Yes (Life-Threatening)
  Sender: FDA-Public Use
  Company Number: None

PATIENT
  Sex: Female
  Weight: 64.4108 kg

DRUGS (1)
  1. LIPITOR [Suspect]
     Indication: BLOOD CHOLESTEROL INCREASED
     Dosage: 1 PER DAY
     Dates: start: 20070225, end: 20070325

REACTIONS (9)
  - ANXIETY [None]
  - DYSPEPSIA [None]
  - IRRITABILITY [None]
  - MALAISE [None]
  - NAUSEA [None]
  - NIGHTMARE [None]
  - OVARIAN CYST RUPTURED [None]
  - PRURITUS [None]
  - WEIGHT DECREASED [None]
